FAERS Safety Report 8762230 (Version 2)
Quarter: 2012Q4

REPORT INFORMATION
  Report Type: 
  Country: PE (occurrence: PE)
  Receive Date: 20120829
  Receipt Date: 20120906
  Transmission Date: 20130627
  Serious: Yes (Hospitalization)
  Sender: FDA-Public Use
  Company Number: PE-PFIZER INC-2012211511

PATIENT
  Age: 79 Year
  Sex: Male

DRUGS (6)
  1. LIPITOR [Suspect]
     Dosage: 80 mg, UNK
     Route: 048
     Dates: start: 2008, end: 20120401
  2. IRRIGOR PLUS [Concomitant]
     Dosage: UNK
  3. LINFENOL [Concomitant]
     Dosage: UNK
     Route: 048
  4. GLEMAZ [Concomitant]
     Dosage: UNK
     Route: 048
  5. LOSAPRESAN [Concomitant]
     Dosage: UNK
  6. GLUCOPHAGE [Concomitant]
     Dosage: UNK
     Route: 048

REACTIONS (1)
  - Gastric infection [Recovered/Resolved]
